FAERS Safety Report 4492872-X (Version None)
Quarter: 2004Q4

REPORT INFORMATION
  Report Type: 
  Country: None (occurrence: None)
  Receive Date: 20041029
  Receipt Date: 20041015
  Transmission Date: 20050328
  Serious: Yes (Life-Threatening, Hospitalization)
  Sender: FDA-Public Use
  Company Number: 2004238580JP

PATIENT
  Age: 35 Year
  Sex: Male
  Weight: 67 kg

DRUGS (8)
  1. SOLU-MEDROL [Suspect]
     Indication: ASTHMA
     Dosage: 500 MG, SINGLE, IV
     Route: 042
     Dates: start: 20040926, end: 20040926
  2. METHYLPREDNISOLONE SODIUM SUCCINATE [Suspect]
     Indication: ASTHMA
     Dosage: 125 MG, SINGLE, IV
     Route: 042
     Dates: start: 20040926
  3. NEOPHYLLIN [Concomitant]
  4. POTACOL-R (MALTOSE) [Concomitant]
  5. BOSMIN (EPINEPHRINE HYDROCHLORIDE) [Concomitant]
  6. MIDAZOLAM HCL [Concomitant]
  7. MUSCULAX [Concomitant]
  8. XYLOCAINE [Concomitant]

REACTIONS (7)
  - ASTHMA [None]
  - CONDITION AGGRAVATED [None]
  - CYANOSIS [None]
  - GENERALISED ERYTHEMA [None]
  - LOSS OF CONSCIOUSNESS [None]
  - RESPIRATORY FAILURE [None]
  - STRIDOR [None]
